FAERS Safety Report 7535506-X (Version None)
Quarter: 2011Q2

REPORT INFORMATION
  Report Type: 
  Country: None (occurrence: None)
  Receive Date: 20110609
  Receipt Date: 20110520
  Transmission Date: 20111010
  Serious: Yes (Hospitalization, Other)
  Sender: FDA-Public Use
  Company Number: US-BAYER-201036565NA

PATIENT
  Age: 22 Year
  Sex: Female
  Weight: 156 kg

DRUGS (5)
  1. YASMIN [Suspect]
     Indication: PREMENSTRUAL SYNDROME
     Dates: start: 20050301, end: 20061201
  2. YAZ [Suspect]
     Indication: PREMENSTRUAL SYNDROME
     Dates: start: 20050301, end: 20061201
  3. NSAID'S [Concomitant]
     Dosage: UNK
  4. TYLENOL W/ CODEINE NO. 3 [Concomitant]
     Indication: PAIN
     Dosage: UNK UNK, PRN (2 TABS AS NEEDED)
     Route: 048
  5. MOTRIN [Concomitant]
     Indication: PAIN
     Dosage: 600 MG, PRN (EVERY 6 HOURS AS NEEDED)
     Route: 048

REACTIONS (6)
  - CHOLELITHIASIS [None]
  - MOOD SWINGS [None]
  - HYPOVOLAEMIA [None]
  - BILE DUCT STONE [None]
  - PAIN [None]
  - ABDOMINAL PAIN UPPER [None]
